FAERS Safety Report 5308590-1 (Version None)
Quarter: 2007Q2

REPORT INFORMATION
  Report Type: 
  Country: None (occurrence: None)
  Receive Date: 20070426
  Receipt Date: 20070419
  Transmission Date: 20071010
  Serious: Yes (Hospitalization)
  Sender: FDA-Public Use
  Company Number: FR-AVENTIS-200610544FR

PATIENT
  Sex: Male

DRUGS (1)
  1. KETEK [Suspect]
     Route: 048

REACTIONS (1)
  - HEPATITIS [None]
